FAERS Safety Report 15781551 (Version 4)
Quarter: 2019Q1

REPORT INFORMATION
  Report Type: Report from Study
  Country: None (occurrence: PT)
  Receive Date: 20190102
  Receipt Date: 20190212
  Transmission Date: 20190417
  Serious: Yes (Other)
  Sender: FDA-Public Use
  Company Number: PT-ABBVIE-18K-130-2608589-00

PATIENT
  Sex: Male

DRUGS (3)
  1. HUMIRA [Suspect]
     Active Substance: ADALIMUMAB
     Indication: PSORIASIS
     Dosage: LOADING DOSE 1
     Route: 058
     Dates: start: 20180530, end: 20180530
  2. HUMIRA [Interacting]
     Active Substance: ADALIMUMAB
     Route: 058
     Dates: start: 20180606, end: 2018
  3. HUMIRA [Interacting]
     Active Substance: ADALIMUMAB
     Route: 058
     Dates: start: 20190206

REACTIONS (4)
  - Catheter site infection [Recovered/Resolved]
  - Catheter site infection [Recovered/Resolved]
  - Inhibitory drug interaction [Unknown]
  - Psoriasis [Not Recovered/Not Resolved]

NARRATIVE: CASE EVENT DATE: 2018
